FAERS Safety Report 14662825 (Version 2)
Quarter: 2018Q2

REPORT INFORMATION
  Report Type: Spontaneous
  Country: US (occurrence: US)
  Receive Date: 20180321
  Receipt Date: 20180615
  Transmission Date: 20180711
  Serious: Yes (Life-Threatening)
  Sender: FDA-Public Use
  Company Number: US-WEST-WARD PHARMACEUTICALS CORP.-US-H14001-18-01897

PATIENT
  Sex: Female

DRUGS (1)
  1. HYDROCHLOROTHIAZIDE. [Suspect]
     Active Substance: HYDROCHLOROTHIAZIDE
     Indication: PRODUCT USED FOR UNKNOWN INDICATION
     Route: 065

REACTIONS (11)
  - Acute respiratory distress syndrome [Unknown]
  - Lactic acidosis [Recovered/Resolved]
  - Leukopenia [Unknown]
  - Renal tubular necrosis [Unknown]
  - Septic shock [Unknown]
  - Leukocytosis [Unknown]
  - Hypotension [Recovered/Resolved]
  - Immune-mediated adverse reaction [Unknown]
  - Pulmonary oedema [Recovered/Resolved]
  - Procalcitonin increased [Unknown]
  - Hypersensitivity [Unknown]
